FAERS Safety Report 18847518 (Version 1)
Quarter: 2021Q1

REPORT INFORMATION
  Report Type: Report from Study
  Country: US (occurrence: US)
  Receive Date: 20210203
  Receipt Date: 20210203
  Transmission Date: 20210419
  Serious: No
  Sender: FDA-Public Use
  Company Number: US-EXELIXIS-CABO-20031987

PATIENT
  Sex: Male

DRUGS (2)
  1. CABOMETYX [Suspect]
     Active Substance: CABOZANTINIB S-MALATE
     Indication: LUNG NEOPLASM MALIGNANT
  2. CABOMETYX [Suspect]
     Active Substance: CABOZANTINIB S-MALATE
     Indication: MALIGNANT RESPIRATORY TRACT NEOPLASM
     Dosage: 40 MG, QD
     Route: 048
     Dates: start: 20200728

REACTIONS (16)
  - Fatigue [Unknown]
  - Dizziness [Unknown]
  - Dry mouth [Unknown]
  - Dysphonia [Unknown]
  - Nausea [Unknown]
  - Pain [Unknown]
  - Anxiety [Recovering/Resolving]
  - Liver function test abnormal [Unknown]
  - Confusional state [Unknown]
  - Off label use [Unknown]
  - Nasal congestion [Unknown]
  - Blood pressure fluctuation [Unknown]
  - Pruritus [Recovered/Resolved]
  - Dry throat [Unknown]
  - Oedema peripheral [Unknown]
  - Dyspnoea [Unknown]
